FAERS Safety Report 16684515 (Version 1)
Quarter: 2019Q3

REPORT INFORMATION
  Report Type: Spontaneous
  Country: GB (occurrence: GB)
  Receive Date: 20190808
  Receipt Date: 20190808
  Transmission Date: 20191004
  Serious: Yes (Hospitalization)
  Sender: FDA-Public Use
  Company Number: GB-TEVA-2019-GB-1090120

PATIENT
  Age: 81 Year
  Sex: Female

DRUGS (14)
  1. LANSOPRAZOLE. [Concomitant]
     Active Substance: LANSOPRAZOLE
  2. SALBUTAMOL [Concomitant]
     Active Substance: ALBUTEROL
  3. DIGOXIN. [Concomitant]
     Active Substance: DIGOXIN
  4. MEMANTINE. [Concomitant]
     Active Substance: MEMANTINE
  5. GLYCERYL TRINITRATE [Concomitant]
     Active Substance: NITROGLYCERIN
  6. BISOPROLOL [Concomitant]
     Active Substance: BISOPROLOL
     Dosage: IN THE MORNING
  7. COLECALCIFEROL [Concomitant]
     Active Substance: CHOLECALCIFEROL
  8. RELVAR ELLIPTA [Concomitant]
     Active Substance: FLUTICASONE FUROATE\VILANTEROL TRIFENATATE
  9. SIMVASTATIN. [Concomitant]
     Active Substance: SIMVASTATIN
  10. SPIRONOLACTONE. [Suspect]
     Active Substance: SPIRONOLACTONE
     Indication: CARDIAC FAILURE CONGESTIVE
     Dosage: IN THE MORNING
     Route: 048
     Dates: start: 20190603, end: 20190604
  11. LOPERAMIDE [Concomitant]
     Active Substance: LOPERAMIDE
  12. PARACETAMOL [Concomitant]
     Active Substance: ACETAMINOPHEN
  13. RIVAROXABAN [Concomitant]
     Active Substance: RIVAROXABAN
  14. METFORMIN [Concomitant]
     Active Substance: METFORMIN HYDROCHLORIDE

REACTIONS (1)
  - Orthostatic hypotension [Recovered/Resolved]

NARRATIVE: CASE EVENT DATE: 20190603
